FAERS Safety Report 4304138-9 (Version None)
Quarter: 2004Q1

REPORT INFORMATION
  Report Type: 
  Country: None (occurrence: None)
  Receive Date: 20040224
  Receipt Date: 20040210
  Transmission Date: 20041129
  Serious: No
  Sender: FDA-Public Use
  Company Number: 27723

PATIENT
  Age: 86 Year
  Sex: Female

DRUGS (5)
  1. BETOPTIC S [Suspect]
     Indication: GLAUCOMA
     Dosage: OPHT
     Route: 047
     Dates: start: 20040124, end: 20040131
  2. DISOPYRAMIDE [Concomitant]
  3. ISOSORBIDE [Concomitant]
  4. DIPYRIDAMOLE [Concomitant]
  5. TEPRENONE [Concomitant]

REACTIONS (2)
  - EYE IRRITATION [None]
  - PULSE ABSENT [None]
